FAERS Safety Report 5298417-9 (Version None)
Quarter: 2007Q2

REPORT INFORMATION
  Report Type: 
  Country: None (occurrence: None)
  Receive Date: 20070409
  Receipt Date: 20070329
  Transmission Date: 20071010
  Serious: Yes (Death, Other)
  Sender: FDA-Public Use
  Company Number: MC200700263

PATIENT
  Age: 61 Year
  Sex: Female
  Weight: 86.2 kg

DRUGS (2)
  1. ANGIOMAX [Suspect]
     Indication: PERCUTANEOUS CORONARY INTERVENTION
     Dosage: SEE IMAGE
     Dates: start: 20070321, end: 20070321
  2. ANGIOMAX [Suspect]
     Indication: PERCUTANEOUS CORONARY INTERVENTION
     Dosage: SEE IMAGE
     Dates: start: 20070321, end: 20070321

REACTIONS (3)
  - BLOOD PRESSURE DECREASED [None]
  - HEPATIC FAILURE [None]
  - OESOPHAGEAL HAEMORRHAGE [None]
